FAERS Safety Report 6172388-5 (Version None)
Quarter: 2009Q2

REPORT INFORMATION
  Report Type: 
  Country: None (occurrence: None)
  Receive Date: 20090429
  Receipt Date: 20090420
  Transmission Date: 20091009
  Serious: Yes (Hospitalization)
  Sender: FDA-Public Use
  Company Number: PHEH2009US03950

PATIENT
  Sex: Female

DRUGS (1)
  1. CLOZARIL [Suspect]
     Indication: SCHIZOPHRENIA, PARANOID TYPE
     Dosage: 200 MG, BID
     Route: 048

REACTIONS (3)
  - CEREBROVASCULAR ACCIDENT [None]
  - NEUTROPHIL COUNT DECREASED [None]
  - SYNCOPE [None]
